FAERS Safety Report 5019543-5 (Version None)
Quarter: 2006Q2

REPORT INFORMATION
  Report Type: 
  Country: None (occurrence: None)
  Receive Date: 20060601
  Receipt Date: 20060523
  Transmission Date: 20061013
  Serious: Yes (Other)
  Sender: FDA-Public Use
  Company Number: 2006049029

PATIENT
  Age: 48 Year
  Sex: Female
  Weight: 63.05 kg

DRUGS (2)
  1. MECLIZINE [Suspect]
     Indication: VERTIGO
     Dosage: 2 TABLETS ONCE, ORAL
     Route: 048
     Dates: start: 20060402, end: 20060402
  2. GUAIFENESIN (GUAIFENESIN) [Concomitant]

REACTIONS (5)
  - BRAIN STEM SYNDROME [None]
  - DIPLOPIA [None]
  - DYSARTHRIA [None]
  - FEELING DRUNK [None]
  - HALLUCINATION, VISUAL [None]
